FAERS Safety Report 4761132-1 (Version None)
Quarter: 2005Q3

REPORT INFORMATION
  Report Type: 
  Country: None (occurrence: None)
  Receive Date: 20050902
  Receipt Date: 20050902
  Transmission Date: 20060218
  Serious: Yes (Other)
  Sender: FDA-Public Use
  Company Number: None

PATIENT
  Age: 72 Year
  Sex: Female
  Weight: 79.3795 kg

DRUGS (2)
  1. BANANA BOAT     SPFX 30      SUN PHARMACEUTICALS [Suspect]
     Indication: PROPHYLAXIS
     Dosage: APPLY AS NEEDED   ONCE   CUTANEOUS
     Route: 003
     Dates: start: 20050623, end: 20050623
  2. BANANA BOAT     SPFX 30      SUN PHARMACEUTICALS [Suspect]
     Indication: SUNBURN
     Dosage: APPLY AS NEEDED   ONCE   CUTANEOUS
     Route: 003
     Dates: start: 20050623, end: 20050623

REACTIONS (6)
  - APPLICATION SITE ERYTHEMA [None]
  - APPLICATION SITE IRRITATION [None]
  - APPLICATION SITE OEDEMA [None]
  - APPLICATION SITE PRURITUS [None]
  - APPLICATION SITE REACTION [None]
  - SKIN EXFOLIATION [None]
